FAERS Safety Report 10259593 (Version 1)
Quarter: 2014Q2

REPORT INFORMATION
  Report Type: Spontaneous
  Country: US (occurrence: US)
  Receive Date: 20140625
  Receipt Date: 20140625
  Transmission Date: 20141212
  Serious: No
  Sender: FDA-Public Use
  Company Number: US-GE HEALTHCARE MEDICAL DIAGNOSTICS-OMPQ-PR-1406S-0655

PATIENT
  Sex: Female
  Weight: 62.2 kg

DRUGS (2)
  1. OMNIPAQUE [Suspect]
     Indication: INTESTINAL OBSTRUCTION
     Route: 065
  2. OMNIPAQUE [Suspect]
     Indication: DIAGNOSTIC PROCEDURE

REACTIONS (3)
  - Sneezing [Unknown]
  - Pruritus [Unknown]
  - Throat irritation [Unknown]
